FAERS Safety Report 21005291 (Version 1)
Quarter: 2022Q2

REPORT INFORMATION
  Report Type: Report from Study
  Country: US (occurrence: US)
  Receive Date: 20220624
  Receipt Date: 20220624
  Transmission Date: 20220721
  Serious: Yes (Hospitalization)
  Sender: FDA-Public Use
  Company Number: US-JNJFOC-20220639684

PATIENT
  Age: 16 Year
  Sex: Male

DRUGS (3)
  1. INFLIXIMAB [Suspect]
     Active Substance: INFLIXIMAB
     Indication: Inflammatory bowel disease
     Route: 041
     Dates: start: 20160512, end: 20161127
  2. INFLIXIMAB [Suspect]
     Active Substance: INFLIXIMAB
     Route: 041
     Dates: start: 20161221
  3. STELARA [Concomitant]
     Active Substance: USTEKINUMAB

REACTIONS (1)
  - Ileostomy [Recovered/Resolved]

NARRATIVE: CASE EVENT DATE: 20220608
